FAERS Safety Report 5167517-6 (Version None)
Quarter: 2006Q4

REPORT INFORMATION
  Report Type: 
  Country: None (occurrence: None)
  Receive Date: 20060830
  Receipt Date: 20060627
  Transmission Date: 20070319
  Serious: Yes (Other)
  Sender: FDA-Public Use
  Company Number: 226624

PATIENT
  Age: 47 Year
  Sex: Female
  Weight: 121.5 kg

DRUGS (15)
  1. XOLAIR [Suspect]
     Indication: ASTHMA
     Dosage: 300 MG, Q4W, SUBCUTANEOUS
     Route: 058
     Dates: start: 20060606
  2. SINGULAIR [Concomitant]
  3. ADVAIR DISKUS 100/50 [Concomitant]
  4. ALBUTEROL (ALBUTEROL/ALBUTEROL SULFATE) [Concomitant]
  5. CLARINEX [Concomitant]
  6. XANAX [Concomitant]
  7. DARVOCET (ACETAMINOPHEN, PROPOXYPHENE NAPSYLATE) [Concomitant]
  8. AMBIEN [Concomitant]
  9. COREG [Concomitant]
  10. PHENERGAN (PROMETHAZINE HYDROCHLORIDE) [Concomitant]
  11. NEBULIZER (RESPIRATORY TREATMENTS AND DEVICES) [Concomitant]
  12. NEXIUM [Concomitant]
  13. ASMANEX TWISTHALER [Concomitant]
  14. PREDNISONE TAB [Concomitant]
  15. SPIRIVA [Concomitant]

REACTIONS (2)
  - PRURITUS [None]
  - THROAT TIGHTNESS [None]
